FAERS Safety Report 19498133 (Version 1)
Quarter: 2021Q3

REPORT INFORMATION
  Report Type: Spontaneous
  Country: JP (occurrence: JP)
  Receive Date: 20210706
  Receipt Date: 20210706
  Transmission Date: 20211014
  Serious: Yes (Other)
  Sender: FDA-Public Use
  Company Number: JP-BAYER-2021-161660

PATIENT
  Age: 35 Year
  Sex: Female

DRUGS (2)
  1. YAZ [Suspect]
     Active Substance: DROSPIRENONE\ETHINYL ESTRADIOL
     Route: 048
  2. PENICILLIN NOS [Concomitant]
     Active Substance: PENICILLIN
     Route: 048

REACTIONS (1)
  - Bacterial diarrhoea [Unknown]

NARRATIVE: CASE EVENT DATE: 20210622
